FAERS Safety Report 5095101-1 (Version None)
Quarter: 2006Q3

REPORT INFORMATION
  Report Type: 
  Country: None (occurrence: None)
  Receive Date: 20060901
  Receipt Date: 20050825
  Transmission Date: 20061208
  Serious: Yes (Death, Life-Threatening, Hospitalization)
  Sender: FDA-Public Use
  Company Number: JP-NOVOPROD-246567

PATIENT
  Age: 8 Year
  Sex: Female
  Weight: 22 kg

DRUGS (1)
  1. NORDITROPIN NORDIFLEX [Suspect]
     Indication: GROWTH HORMONE DEFICIENCY
     Dosage: 0.8 MG, 5 TIMES A WEEK
     Route: 058
     Dates: start: 20050602, end: 20050810

REACTIONS (4)
  - FATIGUE [None]
  - HEPATOBLASTOMA [None]
  - LIVER TRANSPLANT [None]
  - PYREXIA [None]
